FAERS Safety Report 19808081 (Version 1)
Quarter: 2021Q3

REPORT INFORMATION
  Report Type: Spontaneous
  Country: NL (occurrence: NL)
  Receive Date: 20210908
  Receipt Date: 20210908
  Transmission Date: 20211014
  Serious: Yes (Disabling)
  Sender: FDA-Public Use
  Company Number: NL-MYLANLABS-2021M1059540

PATIENT
  Age: 60 Year
  Sex: Male
  Weight: 120 kg

DRUGS (2)
  1. METOPROLOLSUCCINAAT RETARD MYLAN [Suspect]
     Active Substance: METOPROLOL SUCCINATE
     Dosage: 1X PER DAY 100 MG
     Dates: start: 2020
  2. METOPROLOLSUCCINAAT RETARD MYLAN [Suspect]
     Active Substance: METOPROLOL SUCCINATE
     Indication: PRODUCT USED FOR UNKNOWN INDICATION
     Dosage: 1X PER DAY 150 MG

REACTIONS (3)
  - Myalgia [Unknown]
  - Fatigue [Recovering/Resolving]
  - Malaise [Recovering/Resolving]

NARRATIVE: CASE EVENT DATE: 20201226
